FAERS Safety Report 5254929-5 (Version None)
Quarter: 2007Q1

REPORT INFORMATION
  Report Type: 
  Country: None (occurrence: None)
  Receive Date: 20070305
  Receipt Date: 20070222
  Transmission Date: 20070707
  Serious: Yes (Hospitalization, Other)
  Sender: FDA-Public Use
  Company Number: US-BAYER-200710472BWH

PATIENT
  Age: 46 Year
  Sex: Male

DRUGS (13)
  1. NEXAVAR [Suspect]
     Indication: RENAL CELL CARCINOMA STAGE UNSPECIFIED
     Dosage: TOTAL DAILY DOSE: 800 MG  UNIT DOSE: 200 MG
     Route: 048
     Dates: start: 20051001, end: 20070111
  2. NEXAVAR [Suspect]
     Dosage: TOTAL DAILY DOSE: 800 MG  UNIT DOSE: 200 MG
     Route: 048
     Dates: start: 20070201
  3. LISINOPRIL [Concomitant]
     Dosage: TOTAL DAILY DOSE: 40 MG
  4. DECADRON [Concomitant]
     Dosage: TOTAL DAILY DOSE: 12 MG
  5. DECADRON [Concomitant]
     Dosage: TOTAL DAILY DOSE: 6 MG
  6. OXYCONTIN [Concomitant]
     Dosage: TOTAL DAILY DOSE: 240 MG
  7. OXYCODONE HCL [Concomitant]
     Indication: PAIN
     Route: 048
  8. OXYCODONE HCL [Concomitant]
  9. NEURONTIN [Concomitant]
     Dosage: TOTAL DAILY DOSE: 900 MG
     Route: 048
  10. PHENERGAN HCL [Concomitant]
     Indication: NAUSEA
  11. PANTOPRAZOLE SODIUM [Concomitant]
     Dosage: TOTAL DAILY DOSE: 40 MG
     Route: 048
  12. SENNA-S [Concomitant]
     Route: 048
  13. AMLODIPINE [Concomitant]
     Dosage: TOTAL DAILY DOSE: 5 MG
     Route: 048

REACTIONS (7)
  - CONFUSIONAL STATE [None]
  - DEEP VEIN THROMBOSIS [None]
  - DISORIENTATION [None]
  - GAIT DISTURBANCE [None]
  - HYDROCEPHALUS [None]
  - LETHARGY [None]
  - MENTAL STATUS CHANGES [None]
